FAERS Safety Report 4431529-8 (Version None)
Quarter: 2004Q3

REPORT INFORMATION
  Report Type: 
  Country: None (occurrence: None)
  Receive Date: 20040824
  Receipt Date: 20040813
  Transmission Date: 20050211
  Serious: Yes (Hospitalization)
  Sender: FDA-Public Use
  Company Number: PHBS2004CA10793

PATIENT
  Sex: Male

DRUGS (4)
  1. EXELON [Suspect]
     Indication: DEMENTIA ALZHEIMER'S TYPE
     Dosage: UNK, UNK
     Route: 048
  2. EXELON [Suspect]
     Dosage: 1.5 MG, BID
     Route: 048
     Dates: start: 20040804
  3. EXELON [Suspect]
     Dosage: 3 MG, BID
     Route: 048
  4. EXELON [Suspect]
     Dosage: 4.5 MG, BID
     Route: 048
     Dates: start: 20040812

REACTIONS (5)
  - CARDIAC DISORDER [None]
  - DISORIENTATION [None]
  - FEELING ABNORMAL [None]
  - HYPERHIDROSIS [None]
  - VOMITING [None]
